FAERS Safety Report 8739654 (Version 2)
Quarter: 2012Q4

REPORT INFORMATION
  Report Type: 
  Country: US (occurrence: US)
  Receive Date: 20120823
  Receipt Date: 20120907
  Transmission Date: 20130627
  Serious: Yes (Death)
  Sender: FDA-Public Use
  Company Number: US-ROCHE-1105792

PATIENT
  Age: 59 Year
  Sex: Male

DRUGS (19)
  1. RITUXAN [Suspect]
     Indication: PRODUCT USED FOR UNKNOWN INDICATION
  2. BENDAMUSTINE [Concomitant]
  3. NEURONTIN [Concomitant]
     Indication: PAIN
  4. DILAUDID [Concomitant]
     Indication: PAIN
  5. METOPROLOL [Concomitant]
     Indication: HYPERTENSION
  6. LISINOPRIL [Concomitant]
     Indication: HYPERTENSION
  7. TACROLIMUS [Concomitant]
  8. CELLCEPT [Concomitant]
     Route: 065
     Dates: start: 20120709
  9. ACTIGALL [Concomitant]
  10. PENTOSTATIN [Concomitant]
     Route: 065
     Dates: start: 20120706
  11. PENTOSTATIN [Concomitant]
     Route: 065
     Dates: start: 20120713
  12. LEVAQUIN [Concomitant]
  13. ACYCLOVIR [Concomitant]
  14. MICAFUNGIN [Concomitant]
  15. VORICONAZOLE [Concomitant]
  16. FLAGYL [Concomitant]
  17. PENTAMIDINE [Concomitant]
  18. CIPROFLOXACIN [Concomitant]
  19. ANIDULAFUNGIN [Concomitant]

REACTIONS (1)
  - Graft versus host disease [Fatal]
